FAERS Safety Report 7148985-7 (Version None)
Quarter: 2010Q4

REPORT INFORMATION
  Report Type: 
  Country: None (occurrence: None)
  Receive Date: 20101126
  Receipt Date: 20101121
  Transmission Date: 20110411
  Serious: Yes (Hospitalization, Other)
  Sender: FDA-Public Use
  Company Number: 2010AC000298

PATIENT
  Age: 45 Year
  Sex: Female

DRUGS (2)
  1. DIGOXIN [Suspect]
     Dosage: ; PO
     Route: 048
     Dates: start: 20060301, end: 20080601
  2. DIGOXIN [Suspect]
     Dosage: 0.250 MG; QD; PO
     Route: 048
     Dates: start: 20071201, end: 20090801

REACTIONS (17)
  - ANXIETY [None]
  - ARRHYTHMIA [None]
  - CARDIAC DISORDER [None]
  - CARDIAC FAILURE [None]
  - CHEST PAIN [None]
  - CONVULSION [None]
  - DEPRESSION [None]
  - DIARRHOEA [None]
  - ECONOMIC PROBLEM [None]
  - HYPOTENSION [None]
  - MULTIPLE INJURIES [None]
  - NAUSEA [None]
  - PAIN [None]
  - PALPITATIONS [None]
  - STRESS [None]
  - VISUAL IMPAIRMENT [None]
  - VOMITING [None]
